FAERS Safety Report 16543672 (Version 1)
Quarter: 2019Q3

REPORT INFORMATION
  Report Type: Other
  Country: US (occurrence: US)
  Receive Date: 20190709
  Receipt Date: 20190709
  Transmission Date: 20191004
  Serious: No
  Sender: FDA-Public Use
  Company Number: US-GLENMARK PHARMACEUTICALS-2019GMK041361

PATIENT

DRUGS (1)
  1. TOPIRAMATE TABLETS 100MG [Suspect]
     Active Substance: TOPIRAMATE
     Indication: SEIZURE
     Dosage: UNK
     Route: 065

REACTIONS (5)
  - Weight bearing difficulty [Unknown]
  - Product tampering [Unknown]
  - Adverse reaction [Unknown]
  - Drug ineffective [Unknown]
  - Product quality issue [Unknown]
